FAERS Safety Report 9620653 (Version 1)
Quarter: 2013Q4

REPORT INFORMATION
  Report Type: Spontaneous
  Country: JP (occurrence: JP)
  Receive Date: 20131015
  Receipt Date: 20131015
  Transmission Date: 20140711
  Serious: Yes (Hospitalization)
  Sender: FDA-Public Use
  Company Number: JP-AMGEN-JPNSP2013071078

PATIENT
  Age: 68 Year
  Sex: Female
  Weight: 45 kg

DRUGS (20)
  1. VECTIBIX [Suspect]
     Indication: RECTAL CANCER
     Dosage: 200 MG, Q2WK
     Route: 041
     Dates: start: 20120925, end: 20130219
  2. TAKEPRON [Concomitant]
     Dosage: UNK
     Route: 048
     Dates: end: 20130319
  3. ELPLAT [Concomitant]
     Indication: RECTAL CANCER
     Dosage: UNK UNK, Q2WK
     Route: 041
     Dates: start: 20120925
  4. 5-FU                               /00098801/ [Concomitant]
     Indication: RECTAL CANCER
     Dosage: UNK UNK, Q2WK
     Route: 042
     Dates: start: 20120925
  5. LEVOFOLINATE [Concomitant]
     Indication: RECTAL CANCER
     Dosage: UNK UNK, Q2WK
     Route: 041
     Dates: start: 20120925
  6. PROTECADIN [Concomitant]
     Dosage: UNK
     Route: 048
     Dates: end: 20130319
  7. LOXOPROFEN EMEC [Concomitant]
     Dosage: UNK
     Route: 048
     Dates: end: 20130319
  8. MUCOSTA [Concomitant]
     Dosage: UNK
     Route: 048
     Dates: end: 20130319
  9. MINOMYCIN [Concomitant]
     Dosage: UNK
     Route: 048
     Dates: end: 20130319
  10. HIRUDOID                           /00723701/ [Concomitant]
     Dosage: UNK
     Route: 062
     Dates: end: 20130319
  11. MEDICON                            /00048102/ [Concomitant]
     Dosage: UNK
     Route: 048
     Dates: end: 20130319
  12. MUCODYNE [Concomitant]
     Dosage: UNK
     Route: 048
     Dates: end: 20130319
  13. QVAR [Concomitant]
     Dosage: UNK
     Route: 055
  14. SEREVENT [Concomitant]
     Dosage: UNK
     Route: 055
  15. MEPTIN AIR [Concomitant]
     Dosage: UNK
     Route: 055
  16. PREDONINE                          /00016201/ [Concomitant]
     Dosage: UNK
     Route: 048
  17. EMEND                              /01627301/ [Concomitant]
     Dosage: UNK
     Route: 048
     Dates: end: 20130319
  18. DECADRON                           /00016002/ [Concomitant]
     Dosage: UNK
     Route: 042
  19. POLARAMINE [Concomitant]
     Dosage: UNK
     Route: 042
  20. GRANISETRON                        /01178102/ [Concomitant]
     Dosage: UNK
     Route: 042

REACTIONS (1)
  - Interstitial lung disease [Recovering/Resolving]
